FAERS Safety Report 6708056-8 (Version None)
Quarter: 2010Q2

REPORT INFORMATION
  Report Type: 
  Country: None (occurrence: None)
  Receive Date: 20100503
  Receipt Date: 20100426
  Transmission Date: 20101027
  Serious: Yes (Hospitalization)
  Sender: FDA-Public Use
  Company Number: US-GILEAD-2010-0028756

PATIENT
  Sex: Female

DRUGS (18)
  1. LETAIRIS [Suspect]
     Indication: PULMONARY ARTERIAL HYPERTENSION
     Route: 048
     Dates: start: 20100218
  2. ISORDIL [Concomitant]
  3. COUMADIN [Concomitant]
  4. ALDACTONE [Concomitant]
  5. LASIX [Concomitant]
  6. METOLAZONE [Concomitant]
  7. NITROGLYCERIN [Concomitant]
  8. COMBIVENT [Concomitant]
  9. BUDESONIDE MICRONIZED [Concomitant]
  10. ACCOLATE [Concomitant]
  11. CITALOPRAM HYDROBROMIDE [Concomitant]
  12. CYMBALTA [Concomitant]
  13. NEXIUM [Concomitant]
  14. COLACE [Concomitant]
  15. CLINDAMYCIN [Concomitant]
  16. CLONAZEPAM [Concomitant]
  17. PERCOCET [Concomitant]
  18. POTASSIUM CHLORIDE [Concomitant]

REACTIONS (1)
  - ABDOMINAL DISTENSION [None]
